FAERS Safety Report 9540830 (Version 2)
Quarter: 2013Q4

REPORT INFORMATION
  Report Type: Report from Study
  Country: BR (occurrence: BR)
  Receive Date: 20130920
  Receipt Date: 20131002
  Transmission Date: 20140711
  Serious: No
  Sender: FDA-Public Use
  Company Number: PHHY2013BR104916

PATIENT
  Sex: Male
  Weight: 68 kg

DRUGS (7)
  1. EXELON PATCH [Suspect]
     Indication: DEMENTIA ALZHEIMER^S TYPE
     Dosage: 1 UNK, DAILY
     Route: 062
  2. EXELON PATCH [Suspect]
     Dosage: 9.5 MG, DAILY ( ONE 10 CM2 PATCH,DAILY)
  3. PRADAXA [Concomitant]
     Indication: COAGULOPATHY
     Dosage: UNK UKN, UNK
  4. TAPAZOL [Concomitant]
     Indication: THYROID DISORDER
     Dosage: UNK UKN, UNK
  5. PANTOPRAZOLE [Concomitant]
     Dosage: UNK UKN, UNK
  6. ATENSINA [Concomitant]
     Dosage: UNK UKN, UNK
  7. CAPTOPRIL [Concomitant]
     Dosage: UNK UKN, UNK

REACTIONS (3)
  - Blood pressure inadequately controlled [Not Recovered/Not Resolved]
  - Haemorrhage [Not Recovered/Not Resolved]
  - Pruritus [Not Recovered/Not Resolved]
